FAERS Safety Report 13263963 (Version 1)
Quarter: 2017Q1

REPORT INFORMATION
  Report Type: Spontaneous
  Country: US (occurrence: US)
  Receive Date: 20170222
  Receipt Date: 20170222
  Transmission Date: 20170428
  Serious: Yes (Hospitalization)
  Sender: FDA-Public Use
  Company Number: None

PATIENT
  Age: 54 Year
  Sex: Female
  Weight: 91.5 kg

DRUGS (4)
  1. DALTEPARIN PFIZER/BIOLOGICS, INC. [Suspect]
     Active Substance: DALTEPARIN
     Indication: THROMBOSIS
     Dosage: DOSE - 15000 UNIT/0.6 ML
     Route: 058
     Dates: start: 20170110, end: 20170208
  2. DEXAMETHASONE. [Concomitant]
     Active Substance: DEXAMETHASONE
  3. CARBOPLATIN. [Concomitant]
     Active Substance: CARBOPLATIN
  4. GEMZAR [Concomitant]
     Active Substance: GEMCITABINE HYDROCHLORIDE

REACTIONS (2)
  - Haemoglobin decreased [None]
  - Platelet count decreased [None]

NARRATIVE: CASE EVENT DATE: 20170202
